FAERS Safety Report 6566122-4 (Version None)
Quarter: 2010Q1

REPORT INFORMATION
  Report Type: 
  Country: None (occurrence: None)
  Receive Date: 20100202
  Receipt Date: 20100126
  Transmission Date: 20100710
  Serious: Yes (Other)
  Sender: FDA-Public Use
  Company Number: GB-ALLERGAN-1001127US

PATIENT
  Age: 41 Year
  Sex: Female

DRUGS (6)
  1. PILOCARPINA COLIRIO UNSPECIFIED [Suspect]
     Indication: INTRAOCULAR PRESSURE INCREASED
     Dosage: UNK
     Route: 047
  2. LATANOPROST [Suspect]
     Indication: INTRAOCULAR PRESSURE INCREASED
     Dosage: UNK
     Route: 047
  3. CARTEOLOL HYDROCHLORIDE [Suspect]
     Indication: INTRAOCULAR PRESSURE INCREASED
     Dosage: UNK
     Route: 047
  4. BRINZOLAMIDE [Suspect]
     Dosage: UNK
     Route: 047
  5. ACETAZOLAMIDE [Suspect]
     Dosage: 250 MG, QID
     Route: 048
  6. MANNITOL [Suspect]
     Route: 042

REACTIONS (2)
  - DRUG INEFFECTIVE [None]
  - INTRAOCULAR PRESSURE INCREASED [None]
